FAERS Safety Report 6729380-9 (Version None)
Quarter: 2010Q2

REPORT INFORMATION
  Report Type: 
  Country: None (occurrence: None)
  Receive Date: 20100517
  Receipt Date: 20100513
  Transmission Date: 20101027
  Serious: Yes (Life-Threatening, Hospitalization)
  Sender: FDA-Public Use
  Company Number: US-BRISTOL-MYERS SQUIBB COMPANY-15017940

PATIENT
  Age: 77 Year
  Sex: Female
  Weight: 77 kg

DRUGS (22)
  1. TAXOL [Suspect]
     Indication: BREAST CANCER
     Dates: start: 20100113, end: 20100303
  2. CYTOXAN [Suspect]
     Indication: BREAST CANCER
     Dates: start: 20091019, end: 20091223
  3. ADRIAMYCIN PFS [Suspect]
     Indication: BREAST CANCER
     Dates: start: 20091019, end: 20091223
  4. SYNTHROID [Concomitant]
     Dosage: ALSO IN 31MAR2010
     Route: 048
     Dates: start: 19860101
  5. CORTEF [Concomitant]
     Route: 048
     Dates: start: 19860101
  6. FLORINEF [Concomitant]
     Dosage: ALSO IN 31MAR2010
     Route: 048
     Dates: start: 19860101
  7. METOPROLOL TARTRATE [Concomitant]
     Dosage: 50MG BID IN 31MAR2010
     Route: 048
     Dates: start: 20070101
  8. ALENDRONATE [Concomitant]
     Route: 048
     Dates: start: 20080101
  9. DUONEB [Concomitant]
     Indication: WHEEZING
     Dates: start: 20100331
  10. DUONEB [Concomitant]
     Indication: DYSPNOEA
     Dates: start: 20100331
  11. MAGNESIUM OXIDE [Concomitant]
     Route: 048
     Dates: start: 20100331
  12. OMEPRAZOLE [Concomitant]
     Dosage: QAM
     Route: 048
     Dates: start: 20100331
  13. WARFARIN [Concomitant]
     Dosage: QPM
     Route: 048
     Dates: start: 20100331
  14. POTASSIUM CHLORIDE [Concomitant]
     Dosage: LIQUID
     Route: 048
     Dates: start: 20100331
  15. ENOXAPARIN SODIUM [Concomitant]
     Route: 058
     Dates: start: 20100331
  16. FUROSEMIDE [Concomitant]
     Route: 048
     Dates: start: 20100331
  17. HYDROCORTISONE [Concomitant]
     Dosage: 15MG BID ON 4APR2010 STARTING 10MG QAM, 5MG Q LUNCH, 5MG QPM
     Route: 048
     Dates: start: 20100331
  18. TYLENOL (CAPLET) [Concomitant]
     Indication: PAIN
     Dosage: Q4
     Route: 048
     Dates: start: 20100331
  19. OXYCODONE HCL AND ACETAMINOPHEN [Concomitant]
     Indication: PAIN
     Dosage: 1 DF = 5/325MG; Q4
     Route: 048
     Dates: start: 20100331
  20. AMBIEN [Concomitant]
     Indication: INSOMNIA
     Dosage: QHS
     Route: 048
     Dates: start: 20100331
  21. BISACODYL SUPPOSITORY [Concomitant]
     Indication: CONSTIPATION
     Dosage: ROUTE: PR
     Dates: start: 20100331
  22. LOMOTIL [Concomitant]
     Indication: DIARRHOEA
     Dosage: FREQ: QID
     Route: 048

REACTIONS (8)
  - ACUTE RESPIRATORY DISTRESS SYNDROME [None]
  - DISSEMINATED INTRAVASCULAR COAGULATION [None]
  - FEBRILE NEUTROPENIA [None]
  - GASTROINTESTINAL HAEMORRHAGE [None]
  - HYPOTENSION [None]
  - LUNG INFILTRATION [None]
  - PULMONARY EMBOLISM [None]
  - RENAL FAILURE [None]
